FAERS Safety Report 9393068 (Version 3)
Quarter: 2015Q3

REPORT INFORMATION
  Report Type: Report from Study
  Country: US (occurrence: US)
  Receive Date: 20130710
  Receipt Date: 20150727
  Transmission Date: 20151125
  Serious: Yes (Life-Threatening)
  Sender: FDA-Public Use
  Company Number: US-009507513-1307USA004993

PATIENT

DRUGS (7)
  1. SYLATRON [Suspect]
     Active Substance: PEGINTERFERON ALFA-2B
     Indication: MALIGNANT MELANOMA
     Dosage: 1.5 MICROGRAM PER KILOGRAM, QW
     Route: 058
  2. SYLATRON [Suspect]
     Active Substance: PEGINTERFERON ALFA-2B
     Dosage: 4.5 MICROGRAM PER KILOGRAM, QW
     Route: 058
  3. DECITABINE. [Suspect]
     Active Substance: DECITABINE
     Indication: MALIGNANT MELANOMA
     Dosage: 5 MG/M2/DAY (DAYS 1-5 EVERY 28 DAYS)
     Route: 042
  4. DECITABINE. [Suspect]
     Active Substance: DECITABINE
     Dosage: 15 MG/M2/DAY (DAYS 1-5 EVERY 28 DAYS)15 MG/M SUP 2 /D
     Route: 042
  5. DECITABINE. [Suspect]
     Active Substance: DECITABINE
     Dosage: 10 MG/M2/DAY (DAYS 1-5 EVERY 28 DAYS)
     Route: 042
  6. SYLATRON [Suspect]
     Active Substance: PEGINTERFERON ALFA-2B
     Dosage: 3 MICROGRAM PER KILOGRAM, QW
     Route: 058
  7. DECITABINE. [Suspect]
     Active Substance: DECITABINE
     Dosage: 10 MG/M2/DAY (DAYS 1-5 EVERY 28 DAYS)
     Route: 042

REACTIONS (3)
  - Thrombocytopenia [Unknown]
  - Neutropenia [Unknown]
  - Anaemia [Unknown]
